FAERS Safety Report 7647299-6 (Version None)
Quarter: 2011Q3

REPORT INFORMATION
  Report Type: 
  Country: None (occurrence: None)
  Receive Date: 20110801
  Receipt Date: 20110721
  Transmission Date: 20111222
  Serious: Yes (Hospitalization)
  Sender: FDA-Public Use
  Company Number: US-ROCHE-786710

PATIENT
  Sex: Male
  Weight: 92.3 kg

DRUGS (21)
  1. ACTOS [Concomitant]
  2. DEXAMETHASONE [Concomitant]
  3. LANTUS [Concomitant]
     Dosage: REPORTED AS LANTUS SOLOSTAR PEN
  4. PERCOCET [Concomitant]
  5. CITALOPRAM HYDROBROMIDE [Concomitant]
  6. EMLA [Concomitant]
  7. LORAZEPAM [Concomitant]
  8. LOMOTIL [Concomitant]
  9. COMPAZINE [Concomitant]
     Dosage: REPORTED AS COMPAZINO
  10. TRASTUZUMAB [Suspect]
     Indication: OESOPHAGEAL CANCER METASTATIC
     Route: 065
     Dates: start: 20110510, end: 20110607
  11. LISINOPRIL [Concomitant]
  12. OMEPRAZOLE [Concomitant]
  13. METOPROLOL TARTRATE [Concomitant]
  14. XANAX [Concomitant]
  15. BEVACIZUMAB [Suspect]
     Indication: OESOPHAGEAL CANCER METASTATIC
     Route: 065
     Dates: start: 20110517, end: 20110607
  16. OXALIPLATIN [Suspect]
     Indication: OESOPHAGEAL CANCER METASTATIC
     Route: 065
     Dates: start: 20110517, end: 20110607
  17. CRESTOR [Concomitant]
  18. GLYBURIDE [Concomitant]
  19. CAPECITABINE [Suspect]
     Indication: OESOPHAGEAL CANCER METASTATIC
     Dosage: DOSE FREQUENCY:1 PER 2 WEEKS ON AND 1 OFF
     Route: 065
     Dates: start: 20110517, end: 20110620
  20. ONDANSETRON HCL [Concomitant]
  21. HYDROCHLOROTHIAZIDE [Concomitant]

REACTIONS (3)
  - DEHYDRATION [None]
  - PNEUMONIA [None]
  - DIARRHOEA [None]
